FAERS Safety Report 11649051 (Version 1)
Quarter: 2015Q4

REPORT INFORMATION
  Report Type: Spontaneous
  Country: SE (occurrence: SE)
  Receive Date: 20151021
  Receipt Date: 20151021
  Transmission Date: 20160304
  Serious: Yes (Death)
  Sender: FDA-Public Use
  Company Number: SE-SA-2015SA164679

PATIENT
  Age: 34 Year
  Sex: Male

DRUGS (7)
  1. BUPROPION. [Suspect]
     Active Substance: BUPROPION
     Dosage: BEHANDLINGSSTART 2015-04-08?1X1
     Route: 065
     Dates: start: 20150408
  2. SEROQUEL [Concomitant]
     Active Substance: QUETIAPINE FUMARATE
     Route: 065
  3. TEMGESIC [Suspect]
     Active Substance: BUPRENORPHINE HYDROCHLORIDE
     Dosage: BEHANDLINGSSTART 2015-04-20?1+1+1
     Route: 065
     Dates: start: 20150420
  4. VOXRA [Concomitant]
     Active Substance: BUPROPION HYDROCHLORIDE
     Route: 065
  5. LYRICA [Suspect]
     Active Substance: PREGABALIN
     Dosage: BEHANDLINGSSTART 2014-09-02 ?1+1+1
     Route: 065
     Dates: start: 20140902
  6. STILNOCT [Suspect]
     Active Substance: ZOLPIDEM TARTRATE
     Dosage: BEHANDLINGSSTART 2015-03-10?1 TN
     Route: 065
     Dates: start: 20150310
  7. NAPROXEN. [Concomitant]
     Active Substance: NAPROXEN
     Route: 065

REACTIONS (2)
  - Toxicity to various agents [Fatal]
  - Death [Fatal]

NARRATIVE: CASE EVENT DATE: 201508
